FAERS Safety Report 18694105 (Version 1)
Quarter: 2020Q4

REPORT INFORMATION
  Report Type: Spontaneous
  Country: US (occurrence: US)
  Receive Date: 20201230
  Receipt Date: 20201230
  Transmission Date: 20210114
  Serious: Yes (Hospitalization)
  Sender: FDA-Public Use
  Company Number: None

PATIENT
  Age: 74 Year
  Sex: Female

DRUGS (18)
  1. HUMALOG NPH KWIKPEN INSULIN [Concomitant]
  2. METFORMIN [Concomitant]
     Active Substance: METFORMIN HYDROCHLORIDE
  3. METOPROLOL. [Concomitant]
     Active Substance: METOPROLOL
  4. LEVOTHYROXINE. [Concomitant]
     Active Substance: LEVOTHYROXINE
  5. HYDROCORTISONE TOP OINT [Concomitant]
  6. OPSUMIT [Suspect]
     Active Substance: MACITENTAN
     Indication: PULMONARY HYPERTENSION
     Route: 048
     Dates: start: 201905
  7. TADALAFIL. [Suspect]
     Active Substance: TADALAFIL
  8. GLIPIZIDE. [Concomitant]
     Active Substance: GLIPIZIDE
  9. DIGOXIN. [Concomitant]
     Active Substance: DIGOXIN
  10. PYRIDOSTIGMINE [Concomitant]
     Active Substance: PYRIDOSTIGMINE
  11. TRIAMCINOLONE [Concomitant]
     Active Substance: TRIAMCINOLONE
  12. FUROSEMIDE. [Concomitant]
     Active Substance: FUROSEMIDE
  13. AMLODIPINE [Concomitant]
     Active Substance: AMLODIPINE BESYLATE
  14. TOP OINT [Concomitant]
  15. TADALAFIL. [Concomitant]
     Active Substance: TADALAFIL
  16. K-TAB [Concomitant]
     Active Substance: POTASSIUM CHLORIDE
  17. SIMVASTATIN. [Concomitant]
     Active Substance: SIMVASTATIN
  18. WARAFIN [Concomitant]
     Active Substance: WARFARIN

REACTIONS (3)
  - Anticoagulation drug level above therapeutic [None]
  - COVID-19 pneumonia [None]
  - Occult blood positive [None]

NARRATIVE: CASE EVENT DATE: 20201227
